FAERS Safety Report 4856090-5 (Version None)
Quarter: 2005Q4

REPORT INFORMATION
  Report Type: 
  Country: None (occurrence: None)
  Receive Date: 20051216
  Receipt Date: 20050330
  Transmission Date: 20060501
  Serious: Yes (Hospitalization, Disabling)
  Sender: FDA-Public Use
  Company Number: US-MERCK-0503USA05253

PATIENT
  Age: 64 Year
  Sex: Female
  Weight: 52 kg

DRUGS (5)
  1. VIOXX [Suspect]
     Indication: ARTHRITIS
     Route: 048
     Dates: start: 19990301, end: 20041001
  2. TRICOR [Concomitant]
     Route: 065
  3. NEXIUM [Concomitant]
     Route: 065
  4. TOPROL-XL [Concomitant]
     Route: 065
  5. NITROGLYCERIN [Concomitant]
     Route: 065

REACTIONS (17)
  - ACQUIRED DIAPHRAGMATIC EVENTRATION [None]
  - ARTERIOSCLEROSIS CORONARY ARTERY [None]
  - ARTHRODESIS [None]
  - ARTHROPATHY [None]
  - BACK INJURY [None]
  - BRONCHITIS [None]
  - CARDIOMEGALY [None]
  - CORONARY ARTERY DISEASE [None]
  - COUGH [None]
  - DYSLIPIDAEMIA [None]
  - FACIAL PALSY [None]
  - HAEMORRHAGIC CEREBRAL INFARCTION [None]
  - HYPOKALAEMIA [None]
  - JOINT INJURY [None]
  - MYOCARDIAL INFARCTION [None]
  - PYREXIA [None]
  - SCOLIOSIS [None]
